FAERS Safety Report 17001947 (Version 11)
Quarter: 2020Q2

REPORT INFORMATION
  Report Type: Spontaneous
  Country: HU (occurrence: HU)
  Receive Date: 20191106
  Receipt Date: 20200528
  Transmission Date: 20200713
  Serious: Yes (Other)
  Sender: FDA-Public Use
  Company Number: HU-AMGEN-HUNSP2019181108

PATIENT
  Age: 54 Year
  Sex: Female
  Weight: 65 kg

DRUGS (23)
  1. INFLIXIMAB [Suspect]
     Active Substance: INFLIXIMAB
     Indication: ANKYLOSING SPONDYLITIS
     Dosage: UNK
     Route: 065
  2. ADALIMUMAB [Suspect]
     Active Substance: ADALIMUMAB
     Indication: ANKYLOSING SPONDYLITIS
  3. SECUKINUMAB. [Suspect]
     Active Substance: SECUKINUMAB
     Dosage: UNK, MONTHLY
     Route: 058
  4. COSENTYX [Suspect]
     Active Substance: SECUKINUMAB
     Indication: ANKYLOSING SPONDYLITIS
     Dosage: 150 MILLIGRAM, QMO
     Route: 058
     Dates: start: 201709, end: 201803
  5. ROTICOX [Concomitant]
     Dosage: UNK
  6. INFLIXIMAB [Suspect]
     Active Substance: INFLIXIMAB
     Indication: PSORIATIC ARTHROPATHY
  7. SECUKINUMAB. [Suspect]
     Active Substance: SECUKINUMAB
     Indication: PSORIATIC ARTHROPATHY
     Dosage: UNK, MONTHLY
     Route: 058
  8. SECUKINUMAB. [Suspect]
     Active Substance: SECUKINUMAB
     Dosage: 150 MILLIGRAM, QWK
     Route: 058
  9. COSENTYX [Suspect]
     Active Substance: SECUKINUMAB
     Dosage: UNK, QMO
     Route: 058
  10. CALCISEDRON D TRIO [Concomitant]
     Dosage: 2 DOSAGE FORM, QD
     Route: 065
  11. GOLIMUMAB [Suspect]
     Active Substance: GOLIMUMAB
     Indication: ANKYLOSING SPONDYLITIS
     Dosage: UNK
     Route: 065
  12. COSENTYX [Suspect]
     Active Substance: SECUKINUMAB
     Indication: PSORIATIC ARTHROPATHY
     Dosage: 150 MILLIGRAM, QWK
     Route: 058
  13. RANIBIZUMAB. [Suspect]
     Active Substance: RANIBIZUMAB
     Indication: ANKYLOSING SPONDYLITIS
     Dosage: UNK
     Route: 065
  14. COSENTYX [Suspect]
     Active Substance: SECUKINUMAB
     Dosage: 150 MILLIGRAM, QWK
     Route: 058
  15. CALCISEDRON D TRIO [Concomitant]
     Indication: OSTEOPOROSIS
     Dosage: 1 DOSAGE FORM, QWK
     Route: 065
  16. TRIAMCINOLONE [Suspect]
     Active Substance: TRIAMCINOLONE
     Indication: PRODUCT USED FOR UNKNOWN INDICATION
     Dosage: UNK
     Route: 031
  17. RANIBIZUMAB. [Suspect]
     Active Substance: RANIBIZUMAB
     Indication: PSORIATIC ARTHROPATHY
  18. COSENTYX [Suspect]
     Active Substance: SECUKINUMAB
     Dosage: 150 MILLIGRAM, QMO
     Route: 058
  19. ADALIMUMAB [Suspect]
     Active Substance: ADALIMUMAB
     Indication: PSORIATIC ARTHROPATHY
     Dosage: UNK
     Route: 065
  20. ETANERCEPT [Suspect]
     Active Substance: ETANERCEPT
     Indication: ANKYLOSING SPONDYLITIS
     Dosage: UNK
     Route: 065
  21. ETANERCEPT [Suspect]
     Active Substance: ETANERCEPT
     Indication: PSORIATIC ARTHROPATHY
     Dosage: UNK
     Route: 065
  22. SECUKINUMAB. [Suspect]
     Active Substance: SECUKINUMAB
     Indication: ANKYLOSING SPONDYLITIS
     Dosage: 150 MILLIGRAM, QMO
     Route: 058
     Dates: start: 201709, end: 201803
  23. GOLIMUMAB [Suspect]
     Active Substance: GOLIMUMAB
     Indication: PSORIATIC ARTHROPATHY

REACTIONS (5)
  - Disease recurrence [Unknown]
  - Uveitis [Unknown]
  - Drug ineffective [Recovered/Resolved]
  - Psoriatic arthropathy [Unknown]
  - Iridocyclitis [Unknown]

NARRATIVE: CASE EVENT DATE: 201803
